FAERS Safety Report 6833384-5 (Version None)
Quarter: 2010Q3

REPORT INFORMATION
  Report Type: 
  Country: None (occurrence: None)
  Receive Date: 20100712
  Receipt Date: 20070519
  Transmission Date: 20110219
  Serious: No
  Sender: FDA-Public Use
  Company Number: US-PFIZER INC-2007022079

PATIENT
  Sex: Female
  Weight: 76.2 kg

DRUGS (11)
  1. CHANTIX [Suspect]
     Indication: SMOKING CESSATION THERAPY
     Route: 048
     Dates: start: 20070207
  2. TRAZODONE [Concomitant]
     Route: 048
  3. IBUPROFEN [Concomitant]
     Route: 048
  4. CALCIUM [Concomitant]
     Route: 048
  5. MULTI-VITAMINS [Concomitant]
     Route: 048
  6. DETROL LA [Concomitant]
     Route: 048
  7. LISINOPRIL [Concomitant]
     Route: 048
  8. ZYRTEC [Concomitant]
     Route: 048
  9. ZOMIG [Concomitant]
     Indication: MIGRAINE
     Route: 048
  10. SPIRIVA [Concomitant]
     Route: 055
  11. BUPROPION [Concomitant]
     Route: 048

REACTIONS (2)
  - DYSGEUSIA [None]
  - TOOTH INFECTION [None]
